FAERS Safety Report 12990935 (Version 1)
Quarter: 2016Q4

REPORT INFORMATION
  Report Type: Spontaneous
  Country: CA (occurrence: CA)
  Receive Date: 20161201
  Receipt Date: 20161201
  Transmission Date: 20170207
  Serious: Yes (Other)
  Sender: FDA-Public Use
  Company Number: CA-APOTEX-2016AP015002

PATIENT
  Age: 63 Year
  Sex: Female

DRUGS (3)
  1. APO-PRAZO [Suspect]
     Active Substance: PRAZOSIN HYDROCHLORIDE
     Indication: PRODUCT USED FOR UNKNOWN INDICATION
     Dosage: UNK
     Route: 065
  2. APO-AMLODIPINE [Suspect]
     Active Substance: AMLODIPINE BESYLATE
     Indication: PRODUCT USED FOR UNKNOWN INDICATION
     Dosage: UNK
     Route: 065
  3. APO-FLUOXETINE [Suspect]
     Active Substance: FLUOXETINE HYDROCHLORIDE
     Indication: PRODUCT USED FOR UNKNOWN INDICATION
     Dosage: UNK
     Route: 065

REACTIONS (4)
  - Vasospasm [Unknown]
  - Skin discolouration [None]
  - Adverse drug reaction [Unknown]
  - Pain in extremity [None]
